FAERS Safety Report 6220290-2 (Version None)
Quarter: 2009Q2

REPORT INFORMATION
  Report Type: 
  Country: None (occurrence: None)
  Receive Date: 20090526
  Receipt Date: 20090515
  Transmission Date: 20091009
  Serious: Yes (Life-Threatening, Other)
  Sender: FDA-Public Use
  Company Number: PL-IGSA-IG571

PATIENT
  Sex: Male
  Weight: 79.6 kg

DRUGS (1)
  1. HUMAN ALBUMIN GRIFOLS 20% [Suspect]
     Indication: RENAL FAILURE CHRONIC
     Dosage: 100 ML; IV
     Route: 042
     Dates: start: 20090422, end: 20090422

REACTIONS (3)
  - CIRCULATORY COLLAPSE [None]
  - DYSPNOEA [None]
  - SHOCK [None]
